FAERS Safety Report 6734078-7 (Version None)
Quarter: 2010Q2

REPORT INFORMATION
  Report Type: 
  Country: None (occurrence: None)
  Receive Date: 20100518
  Receipt Date: 20100505
  Transmission Date: 20101027
  Serious: Yes (Other)
  Sender: FDA-Public Use
  Company Number: 230094M10USA

PATIENT
  Age: 58 Year
  Sex: Male

DRUGS (9)
  1. REBIF [Suspect]
     Indication: MULTIPLE SCLEROSIS
     Dosage: 3 IN 1 WK, SUBCUTANEOUS
     Route: 058
     Dates: start: 20090901, end: 20090101
  2. ASPIRIN [Concomitant]
  3. NIACIN [Concomitant]
  4. GLUCOSAMINE/CHONDOROITIN SULPHATE (JORIX) [Concomitant]
  5. VITAMIN D [Concomitant]
  6. MULTIVITAMIN (MULTIVITAMIN /00831701/) [Concomitant]
  7. FISH OIL (FISH OIL) [Concomitant]
  8. FLAX SEED (LINUM USITATISSIMUM SEED OIL) [Concomitant]
  9. BACLOFEN [Concomitant]

REACTIONS (1)
  - VENTRICULAR EXTRASYSTOLES [None]
